FAERS Safety Report 7134279-2 (Version None)
Quarter: 2010Q4

REPORT INFORMATION
  Report Type: 
  Country: None (occurrence: None)
  Receive Date: 20101117
  Receipt Date: 20101105
  Transmission Date: 20110411
  Serious: Yes (Hospitalization)
  Sender: FDA-Public Use
  Company Number: KV201000336

PATIENT
  Age: 65 Year
  Sex: Female

DRUGS (4)
  1. PREDNISOLONE [Suspect]
     Indication: RHEUMATOID ARTHRITIS
     Dosage: 1.5MG,QD
  2. METHOTREXATE [Suspect]
     Indication: RHEUMATOID ARTHRITIS
     Dosage: 10 MG, WEEK
  3. HYDROXYCHLOROQUINE SULFATE [Concomitant]
  4. SULFASALAZINE [Concomitant]

REACTIONS (2)
  - DISSEMINATED TUBERCULOSIS [None]
  - NECROTISING FASCIITIS [None]
